FAERS Safety Report 10305148 (Version 3)
Quarter: 2014Q3

REPORT INFORMATION
  Report Type: Report from Study
  Country: US (occurrence: US)
  Receive Date: 20140715
  Receipt Date: 20140804
  Transmission Date: 20150326
  Serious: Yes (Other)
  Sender: FDA-Public Use
  Company Number: 2012SP002419

PATIENT
  Age: 28 Year
  Sex: Male
  Weight: 73 kg

DRUGS (4)
  1. ESLICARBAZEPINE ACETATE [Suspect]
     Active Substance: ESLICARBAZEPINE ACETATE
     Indication: PARTIAL SEIZURES
     Route: 048
     Dates: start: 20120711, end: 20120805
  2. LEVETIRACETAM. [Concomitant]
     Active Substance: LEVETIRACETAM
     Route: 048
     Dates: start: 20100813
  3. ESLICARBAZEPINE ACETATE [Suspect]
     Active Substance: ESLICARBAZEPINE ACETATE
     Indication: PARTIAL SEIZURES
     Route: 048
     Dates: start: 20120305, end: 20120710
  4. PHENYTOIN. [Concomitant]
     Active Substance: PHENYTOIN
     Route: 048
     Dates: start: 20100810

REACTIONS (1)
  - Agitation [Recovered/Resolved]

NARRATIVE: CASE EVENT DATE: 20120409
